FAERS Safety Report 10025421 (Version 2)
Quarter: 2014Q2

REPORT INFORMATION
  Report Type: Spontaneous
  Country: GB (occurrence: GB)
  Receive Date: 20140320
  Receipt Date: 20140411
  Transmission Date: 20141212
  Serious: Yes (Life-Threatening, Hospitalization, Other)
  Sender: FDA-Public Use
  Company Number: GB-PFIZER INC-2014076250

PATIENT
  Age: 14 Year
  Sex: Male

DRUGS (5)
  1. CLINDAMYCIN PHOSPHATE [Suspect]
     Dosage: 48 G, UNK
     Route: 042
     Dates: start: 20131117, end: 20131119
  2. DAPTOMYCIN [Suspect]
     Indication: ENDOCARDITIS STAPHYLOCOCCAL
     Dosage: 500 MG, DAILY
     Route: 042
     Dates: start: 20131117, end: 20131119
  3. GENTAMICIN [Concomitant]
     Dosage: UNK
  4. RIFAMPICIN [Concomitant]
     Dosage: UNK
  5. VANCOMYCIN [Concomitant]
     Dosage: UNK

REACTIONS (8)
  - Necrotising fasciitis [Unknown]
  - Staphylococcal infection [Unknown]
  - Staphylococcal sepsis [Unknown]
  - Drug administered to patient of inappropriate age [Unknown]
  - Joint swelling [Unknown]
  - Limb discomfort [Unknown]
  - Chest pain [Unknown]
  - Endocarditis [Unknown]
